FAERS Safety Report 6100180-6 (Version None)
Quarter: 2009Q1

REPORT INFORMATION
  Report Type: 
  Country: None (occurrence: None)
  Receive Date: 20090303
  Receipt Date: 20090219
  Transmission Date: 20090719
  Serious: Yes (Other)
  Sender: FDA-Public Use
  Company Number: FR-CELGENEUS-056-20785-09021251

PATIENT
  Sex: Female

DRUGS (1)
  1. THALOMID [Suspect]
     Indication: STILL'S DISEASE ADULT ONSET
     Route: 048

REACTIONS (2)
  - CYTOMEGALOVIRUS INFECTION [None]
  - STILL'S DISEASE ADULT ONSET [None]
